FAERS Safety Report 8576067-6 (Version None)
Quarter: 2012Q3

REPORT INFORMATION
  Report Type: 
  Country: None (occurrence: None)
  Receive Date: 20120724
  Receipt Date: 20120711
  Transmission Date: 20120928
  Serious: Yes (Other)
  Sender: FDA-Public Use
  Company Number: AU-SEPTODONT-201200700

PATIENT
  Age: 59 Year
  Sex: Male

DRUGS (1)
  1. ARTICAINE HYDROCHLORIDE WITH EPINEPHRINE [Suspect]
     Indication: LOCAL ANAESTHESIA
     Dosage: 1 CARTRIDGE DENTAL
     Route: 004

REACTIONS (7)
  - HYPOAESTHESIA ORAL [None]
  - DYSAESTHESIA [None]
  - NERVE INJURY [None]
  - DYSGEUSIA [None]
  - GLOSSODYNIA [None]
  - DYSARTHRIA [None]
  - PARAESTHESIA [None]
